FAERS Safety Report 11565972 (Version 1)
Quarter: 2015Q3

REPORT INFORMATION
  Report Type: Spontaneous
  Country: US (occurrence: US)
  Receive Date: 20150916
  Receipt Date: 20150916
  Transmission Date: 20151125
  Serious: No
  Sender: FDA-Public Use
  Company Number: US-ELI_LILLY_AND_COMPANY-US200905003606

PATIENT
  Age: 69 Year
  Sex: Female

DRUGS (3)
  1. CALCIUM [Concomitant]
     Active Substance: CALCIUM
     Dosage: 600 MG, DAILY (1/D)
  2. FORTEO [Suspect]
     Active Substance: TERIPARATIDE
     Indication: OSTEOPOROSIS
     Dates: start: 20090428
  3. CALCIUM [Concomitant]
     Active Substance: CALCIUM
     Dosage: TWO 600 MG, DAILY (1/D)
     Dates: start: 200905

REACTIONS (4)
  - Sleep disorder [Recovering/Resolving]
  - Headache [Recovered/Resolved]
  - Muscular weakness [Recovering/Resolving]
  - Muscle spasms [Recovering/Resolving]

NARRATIVE: CASE EVENT DATE: 200905
